FAERS Safety Report 7364352-5 (Version None)
Quarter: 2011Q1

REPORT INFORMATION
  Report Type: 
  Country: None (occurrence: None)
  Receive Date: 20110321
  Receipt Date: 20110309
  Transmission Date: 20110831
  Serious: Yes (Other)
  Sender: FDA-Public Use
  Company Number: IL-JNJFOC-20110207200

PATIENT
  Age: 2 Decade
  Sex: Female

DRUGS (3)
  1. CONCERTA [Suspect]
     Route: 048
  2. LAMICTAL [Suspect]
     Indication: EPILEPSY
     Route: 065
  3. CONCERTA [Suspect]
     Indication: ATTENTION DEFICIT/HYPERACTIVITY DISORDER
     Dosage: 7 DAYS A WEEK
     Route: 048

REACTIONS (3)
  - MYOCLONIC EPILEPSY [None]
  - BENIGN BREAST NEOPLASM [None]
  - FIBROADENOMA OF BREAST [None]
